FAERS Safety Report 9789970 (Version 4)
Quarter: 2014Q3

REPORT INFORMATION
  Report Type: Spontaneous
  Country: PL (occurrence: None)
  Receive Date: 20131227
  Receipt Date: 20140821
  Transmission Date: 20150326
  Serious: Yes (Hospitalization, Other)
  Sender: FDA-Public Use
  Company Number: 1312-1628

PATIENT
  Age: 67 Year
  Sex: Male
  Weight: 82 kg

DRUGS (27)
  1. VEGF TRAP-EYE OR LASER TREATMENT (CODE NOT BROKEN) [Suspect]
     Active Substance: AFLIBERCEPT
     Indication: DIABETIC RETINAL OEDEMA
     Route: 031
     Dates: start: 20130402
  2. ATORVASTATIN (ATORVASTATIN) [Concomitant]
     Active Substance: ATORVASTATIN
  3. FLUORESCEINE (FLUORESCEIN SODIUM) [Concomitant]
  4. METFORMAX (METFORMIN HYDROCHLORIDE) [Concomitant]
  5. BISOPROLOL FUMARATE (BISOPROLOL FUMARATE) [Concomitant]
  6. BISOCARD (BISOPROLOL FUMARATE) [Concomitant]
  7. OFTAQUIX (LEVOFLOXACIN) [Concomitant]
  8. METOCARD (METOPROLOL TARTRATE) [Concomitant]
  9. GENSULIN  (INSULIN HUMAN) [Concomitant]
  10. TROPICAMIDE (TROPICAMIDE) [Concomitant]
     Active Substance: TROPICAMIDE
  11. POVIDONE IODINE (POVIDONE-IDOINE) [Concomitant]
  12. CLOPIDOGREL [Concomitant]
     Active Substance: CLOPIDOGREL BISULFATE
  13. AMLOPIN (AMLODIPINE BESILATE) [Concomitant]
  14. POLOCARD (ACETYLSALICYLIC ACID) [Concomitant]
  15. PLAVIX (CLOPIDOGREL BISULFATE) [Concomitant]
  16. GENSULIN M40 (INSULIN HUMAN INJECTION, ISOPHANE) [Concomitant]
  17. CONTROLOC (PANTOPRAZOLE) [Concomitant]
  18. LEVOFLOXACIN (LEVOFLOXACIN) [Concomitant]
     Active Substance: LEVOFLOXACIN
  19. ALCAINE (PROXYMETACAINE HYDROCHLORIDE) [Concomitant]
  20. AMLODIPINE [Concomitant]
     Active Substance: AMLODIPINE BESYLATE
  21. TRITACE (RAMIPRIL) [Concomitant]
  22. IPP (OMEPRAZOLE) [Concomitant]
  23. GENSULIN N (INSULIN HUMAN INJECTION, ISOPHANE) [Concomitant]
  24. BISOPROMERCK (BISOPROLOL FUMARATE) [Concomitant]
  25. CO PRESTARIUM (COVERAM) [Concomitant]
  26. ATORIS (ATORVASTATIN CALCIUM) [Concomitant]
  27. GENSULIN M30 (INSULIN HUMAN, INSULIN HUMAN INJECTION, ISOPHANE) [Concomitant]

REACTIONS (3)
  - Angina unstable [None]
  - Cardiac disorder [None]
  - Condition aggravated [None]

NARRATIVE: CASE EVENT DATE: 20131203
